FAERS Safety Report 7335925-0 (Version None)
Quarter: 2011Q1

REPORT INFORMATION
  Report Type: 
  Country: None (occurrence: None)
  Receive Date: 20110307
  Receipt Date: 20110221
  Transmission Date: 20110831
  Serious: Yes (Other)
  Sender: FDA-Public Use
  Company Number: US-JNJFOC-3003120375-2011-01

PATIENT
  Age: 53 Year
  Sex: Female
  Weight: 79.38 kg

DRUGS (2)
  1. CELEXA [Concomitant]
     Indication: DEPRESSION
     Dosage: DAILY DOSE TEXT: 60MG DAILY
     Route: 065
  2. PRECISE (DEVICE) [Suspect]
     Indication: ARTHRALGIA
     Dosage: DAILY DOSE TEXT: ONE PATCH ON EACH HIP ONCE
     Route: 061
     Dates: start: 20110202, end: 20110202

REACTIONS (6)
  - APPLICATION SITE BURN [None]
  - URTICARIA [None]
  - WRONG TECHNIQUE IN DRUG USAGE PROCESS [None]
  - SKIN EXFOLIATION [None]
  - APPLICATION SITE DISCOLOURATION [None]
  - APPLICATION SITE PAIN [None]
